FAERS Safety Report 18968085 (Version 1)
Quarter: 2021Q1

REPORT INFORMATION
  Report Type: Spontaneous
  Country: TR (occurrence: TR)
  Receive Date: 20210304
  Receipt Date: 20210304
  Transmission Date: 20210420
  Serious: Yes (Other)
  Sender: FDA-Public Use
  Company Number: NVSC2021TR046301

PATIENT
  Age: 43 Year
  Sex: Male

DRUGS (1)
  1. TRILEPTAL [Suspect]
     Active Substance: OXCARBAZEPINE
     Indication: EPILEPSY
     Dosage: 1.5 DF, BID (1.5 IN MORNING AND 1.5 IN THE EVENING)
     Route: 065

REACTIONS (2)
  - Syncope [Unknown]
  - Product supply issue [Unknown]
